FAERS Safety Report 8931915 (Version 1)
Quarter: 2012Q4

REPORT INFORMATION
  Report Type: 
  Country: US (occurrence: US)
  Receive Date: 20121128
  Receipt Date: 20121128
  Transmission Date: 20130627
  Serious: Yes (Other)
  Sender: FDA-Public Use
  Company Number: US-PFIZER INC-2012297691

PATIENT
  Age: 61 Year
  Sex: Male
  Weight: 90.7 kg

DRUGS (3)
  1. ZOLOFT [Suspect]
     Indication: DEPRESSION
     Dosage: 100 mg, daily
  2. LEVEMIR [Concomitant]
     Indication: DIABETES
     Dosage: 15 IU, 2x/day
  3. NOVOLOG [Concomitant]
     Indication: DIABETES
     Dosage: 8 IU, 3x/day

REACTIONS (3)
  - Renal failure [Not Recovered/Not Resolved]
  - Blindness [Not Recovered/Not Resolved]
  - Cardiac disorder [Not Recovered/Not Resolved]
